FAERS Safety Report 7653004-X (Version None)
Quarter: 2011Q3

REPORT INFORMATION
  Report Type: 
  Country: None (occurrence: None)
  Receive Date: 20110803
  Receipt Date: 20110706
  Transmission Date: 20111222
  Serious: No
  Sender: FDA-Public Use
  Company Number: US-BAYER-2011-059857

PATIENT
  Age: 59 Year
  Sex: Male
  Weight: 70 kg

DRUGS (5)
  1. MULTI-VITAMIN [Concomitant]
  2. ASCORBIC ACID [Concomitant]
  3. FISH OIL [Concomitant]
  4. LIPITOR [Concomitant]
  5. ALEVE (CAPLET) [Suspect]
     Indication: BACK PAIN
     Dosage: 2 DF, ONCE
     Route: 048
     Dates: start: 20110702, end: 20110702

REACTIONS (3)
  - PRURITUS [None]
  - SOMNOLENCE [None]
  - URTICARIA [None]
